FAERS Safety Report 6070681-8 (Version None)
Quarter: 2009Q1

REPORT INFORMATION
  Report Type: 
  Country: None (occurrence: None)
  Receive Date: 20090209
  Receipt Date: 20090108
  Transmission Date: 20090719
  Serious: Yes (Hospitalization)
  Sender: FDA-Public Use
  Company Number: US-PFIZER INC-2009153442

PATIENT
  Age: 79 Year

DRUGS (1)
  1. TIKOSYN [Suspect]

REACTIONS (1)
  - UNEVALUABLE EVENT [None]
